FAERS Safety Report 8403031-X (Version None)
Quarter: 2012Q2

REPORT INFORMATION
  Report Type: 
  Country: None (occurrence: None)
  Receive Date: 20120601
  Receipt Date: 20120522
  Transmission Date: 20120825
  Serious: Yes (Death)
  Sender: FDA-Public Use
  Company Number: US-ELI_LILLY_AND_COMPANY-US201203000672

PATIENT
  Sex: Female
  Weight: 44.9 kg

DRUGS (5)
  1. AREDIA [Concomitant]
  2. VITAMIN D [Concomitant]
  3. FORTEO [Suspect]
     Indication: OSTEOPOROSIS
     Dosage: 20 UG, QD
     Route: 058
     Dates: end: 20111107
  4. COUMADIN [Concomitant]
  5. FAMOTIDINE [Concomitant]

REACTIONS (3)
  - METASTASES TO BONE [None]
  - NON-HODGKIN'S LYMPHOMA [None]
  - ANAEMIA [None]
